FAERS Safety Report 12632519 (Version 2)
Quarter: 2016Q3

REPORT INFORMATION
  Report Type: Spontaneous
  Country: US (occurrence: US)
  Receive Date: 20160808
  Receipt Date: 20160808
  Transmission Date: 20161109
  Serious: No
  Sender: FDA-Public Use
  Company Number: US-BEH-2016062507

PATIENT
  Sex: Female
  Weight: 135 kg

DRUGS (24)
  1. LANSOPRAZOLE. [Concomitant]
     Active Substance: LANSOPRAZOLE
  2. HIZENTRA [Suspect]
     Active Substance: HUMAN IMMUNOGLOBULIN G
     Route: 058
  3. PRILOSEC [Concomitant]
     Active Substance: OMEPRAZOLE MAGNESIUM
  4. PREDNISONE. [Concomitant]
     Active Substance: PREDNISONE
  5. HIZENTRA [Suspect]
     Active Substance: HUMAN IMMUNOGLOBULIN G
     Route: 058
  6. LISINOPRIL. [Concomitant]
     Active Substance: LISINOPRIL
  7. NORCO [Concomitant]
     Active Substance: ACETAMINOPHEN\HYDROCODONE BITARTRATE
  8. ITRACONAZOLE. [Concomitant]
     Active Substance: ITRACONAZOLE
  9. HIZENTRA [Suspect]
     Active Substance: HUMAN IMMUNOGLOBULIN G
     Indication: IMMUNODEFICIENCY COMMON VARIABLE
     Route: 058
  10. HYDROXYZINE [Concomitant]
     Active Substance: HYDROXYZINE\HYDROXYZINE HYDROCHLORIDE
  11. L-M-X [Concomitant]
  12. NYSTATIN-TRIAMCINOLONE [Concomitant]
  13. DUONEB [Concomitant]
     Active Substance: ALBUTEROL SULFATE\IPRATROPIUM BROMIDE
  14. ACETAMINOPHEN. [Concomitant]
     Active Substance: ACETAMINOPHEN
  15. EPIPEN [Concomitant]
     Active Substance: EPINEPHRINE
  16. XANAX [Concomitant]
     Active Substance: ALPRAZOLAM
  17. LASIX [Concomitant]
     Active Substance: FUROSEMIDE
  18. SERTRALINE [Concomitant]
     Active Substance: SERTRALINE HYDROCHLORIDE
  19. SINGULAIR [Concomitant]
     Active Substance: MONTELUKAST SODIUM
  20. VENTOLIN [Concomitant]
     Active Substance: ALBUTEROL SULFATE
  21. FLUCONAZOLE. [Concomitant]
     Active Substance: FLUCONAZOLE
  22. DIPHENHYDRAMINE. [Concomitant]
     Active Substance: DIPHENHYDRAMINE
  23. ADVAIR HFA [Concomitant]
     Active Substance: FLUTICASONE PROPIONATE\SALMETEROL XINAFOATE
  24. PNEUMOVAX 23 [Concomitant]
     Active Substance: PNEUMOCOCCAL VACCINE, POLYVALENT 23

REACTIONS (3)
  - Fatigue [Unknown]
  - Hyperhidrosis [Unknown]
  - Migraine [Unknown]
